FAERS Safety Report 8954594 (Version 1)
Quarter: 2012Q4

REPORT INFORMATION
  Report Type: Spontaneous
  Country: US (occurrence: None)
  Receive Date: 20121205
  Receipt Date: 20121205
  Transmission Date: 20130627
  Serious: Yes (Hospitalization)
  Sender: FDA-Public Use
  Company Number: None

PATIENT
  Age: 41 Year
  Sex: Female
  Weight: 77 kg

DRUGS (8)
  1. ISOVUE 300 [Suspect]
     Indication: SCAN WITH CONTRAST
     Dosage: 130ml IV at 5ml/sec
     Route: 042
     Dates: start: 20121025
  2. VERAPAMIL [Concomitant]
  3. POTASSIUM CHLORIDE [Concomitant]
  4. HYDRALAZINE [Concomitant]
  5. FERROUS SULFATE [Concomitant]
  6. SIMVASTATIN [Concomitant]
  7. METFORMIN [Concomitant]
  8. ASPIRIN [Concomitant]

REACTIONS (4)
  - Dysphagia [None]
  - Pharyngeal hypoaesthesia [None]
  - Contrast media allergy [None]
  - Blood pressure increased [None]
